FAERS Safety Report 17428809 (Version 1)
Quarter: 2020Q1

REPORT INFORMATION
  Report Type: Spontaneous
  Country: US (occurrence: US)
  Receive Date: 20200217
  Receipt Date: 20200217
  Transmission Date: 20200409
  Serious: No
  Sender: FDA-Public Use
  Company Number: US-TEVA-2020-US-1185014

PATIENT
  Age: 59 Year
  Sex: Female

DRUGS (1)
  1. OXYBUTYNIN CHLORIDE. [Suspect]
     Active Substance: OXYBUTYNIN CHLORIDE
     Dosage: OXYBUTYNIN CHLORIDE EXTENDED RELEASE 5 MG.
     Route: 065

REACTIONS (4)
  - Eye irritation [Unknown]
  - Salivary hypersecretion [Unknown]
  - Dry eye [Unknown]
  - Drug ineffective [Unknown]
